FAERS Safety Report 25395314 (Version 2)
Quarter: 2025Q2

REPORT INFORMATION
  Report Type: Spontaneous
  Country: US (occurrence: US)
  Receive Date: 20250604
  Receipt Date: 20250613
  Transmission Date: 20250716
  Serious: Yes (Other)
  Sender: PFIZER
  Company Number: US-PFIZER INC-PV202500066132

PATIENT

DRUGS (4)
  1. FENTANYL CITRATE [Suspect]
     Active Substance: FENTANYL CITRATE
     Indication: Epidural analgesia
     Route: 064
  2. FENTANYL CITRATE [Suspect]
     Active Substance: FENTANYL CITRATE
     Route: 064
  3. BUPIVACAINE [Concomitant]
     Active Substance: BUPIVACAINE
     Indication: Epidural analgesia
     Route: 064
  4. LIDOCAINE [Concomitant]
     Active Substance: LIDOCAINE
     Indication: Epidural analgesia
     Route: 064

REACTIONS (2)
  - Foetal exposure during delivery [Recovered/Resolved]
  - Neonatal respiratory depression [Recovered/Resolved]
